FAERS Safety Report 24467650 (Version 1)
Quarter: 2024Q4

REPORT INFORMATION
  Report Type: Report from Study
  Country: US (occurrence: US)
  Receive Date: 20241018
  Receipt Date: 20241018
  Transmission Date: 20250115
  Serious: No
  Sender: ROCHE
  Company Number: US-ROCHE-3578105

PATIENT
  Age: 19 Year

DRUGS (1)
  1. XOLAIR [Suspect]
     Active Substance: OMALIZUMAB
     Indication: Product used for unknown indication
     Route: 065
     Dates: start: 2022

REACTIONS (4)
  - Dyspnoea [Recovered/Resolved]
  - Eye swelling [Unknown]
  - Swelling [Recovered/Resolved]
  - Skin burning sensation [Recovered/Resolved]
